FAERS Safety Report 6929642-6 (Version None)
Quarter: 2010Q3

REPORT INFORMATION
  Report Type: 
  Country: None (occurrence: None)
  Receive Date: 20100818
  Receipt Date: 20100804
  Transmission Date: 20110219
  Serious: Yes (Life-Threatening, Hospitalization, Other)
  Sender: FDA-Public Use
  Company Number: GB-BAYER-201033701GPV

PATIENT
  Age: 28 Year
  Sex: Female
  Weight: 88 kg

DRUGS (2)
  1. MIRENA [Suspect]
     Indication: CONTRACEPTION
     Route: 015
     Dates: start: 20100706, end: 20100707
  2. INSTILLAGEL [Suspect]
     Indication: LOCAL ANAESTHESIA
     Route: 067
     Dates: start: 20100706, end: 20100706

REACTIONS (4)
  - ANAPHYLACTIC SHOCK [None]
  - RASH ERYTHEMATOUS [None]
  - RASH PRURITIC [None]
  - VULVOVAGINAL BURNING SENSATION [None]
